FAERS Safety Report 6236017-4 (Version None)
Quarter: 2009Q2

REPORT INFORMATION
  Report Type: 
  Country: None (occurrence: None)
  Receive Date: 20090619
  Receipt Date: 20090615
  Transmission Date: 20091009
  Serious: Yes (Hospitalization)
  Sender: FDA-Public Use
  Company Number: BR-BRISTOL-MYERS SQUIBB COMPANY-14567036

PATIENT
  Age: 23 Year
  Sex: Male
  Weight: 92 kg

DRUGS (1)
  1. ABILIFY [Suspect]
     Indication: SCHIZOPHRENIA
     Dosage: DOSE REDUCED TO 7.5 MG DAILY. DURATION: STARTED 2 MONTHS AGO.
     Route: 048
     Dates: start: 20090101

REACTIONS (13)
  - AGGRESSION [None]
  - AGITATION [None]
  - APATHY [None]
  - DIARRHOEA [None]
  - EOSINOPHIL COUNT DECREASED [None]
  - EXTRAPYRAMIDAL DISORDER [None]
  - HYPERTENSION [None]
  - PALPITATIONS [None]
  - PERIPHERAL COLDNESS [None]
  - RED BLOOD CELL COUNT INCREASED [None]
  - TACHYCARDIA [None]
  - TREMOR [None]
  - WEIGHT INCREASED [None]
